FAERS Safety Report 5825684-2 (Version None)
Quarter: 2008Q3

REPORT INFORMATION
  Report Type: 
  Country: None (occurrence: None)
  Receive Date: 20080722
  Receipt Date: 20080717
  Transmission Date: 20090109
  Serious: Yes (Other)
  Sender: FDA-Public Use
  Company Number: THYR-1000042

PATIENT
  Age: 67 Year
  Sex: Female
  Weight: 94 kg

DRUGS (13)
  1. THYROGEN [Suspect]
     Indication: RADIOACTIVE IODINE THERAPY
     Dosage: 0.9 MG, QD, INTRAMUSCULAR
     Route: 030
     Dates: start: 20080331, end: 20080401
  2. ALLOPURINOL [Concomitant]
  3. ATENOLOL [Concomitant]
  4. DIOVAN [Concomitant]
  5. JANUVIA (SITAGLIPTIN PHOSPHATE) [Concomitant]
  6. DEMADEX [Concomitant]
  7. ASPIRIN [Concomitant]
  8. FORTAMET (METFORMIN HYDROCHLORIDE) [Concomitant]
  9. LISINOPRIL [Concomitant]
  10. LIPITOR [Concomitant]
  11. LYRICA [Concomitant]
  12. MECLIZINE [Concomitant]
  13. SYNTHROID [Concomitant]

REACTIONS (20)
  - APTYALISM [None]
  - ASTHENIA [None]
  - BLOOD CALCIUM DECREASED [None]
  - DEHYDRATION [None]
  - DRUG TOXICITY [None]
  - DRY MOUTH [None]
  - ECCHYMOSIS [None]
  - EPISTAXIS [None]
  - FALL [None]
  - FOLATE DEFICIENCY [None]
  - GASTROENTERITIS [None]
  - HYPOTHYROIDISM [None]
  - IODINE UPTAKE INCREASED [None]
  - MYELODYSPLASTIC SYNDROME [None]
  - PANCYTOPENIA [None]
  - RENAL FAILURE [None]
  - SALIVARY GLAND ENLARGEMENT [None]
  - SYNCOPE [None]
  - TENDERNESS [None]
  - VITAMIN B12 DEFICIENCY [None]
